FAERS Safety Report 11422841 (Version 8)
Quarter: 2015Q4

REPORT INFORMATION
  Report Type: Spontaneous
  Country: JP (occurrence: JP)
  Receive Date: 20150827
  Receipt Date: 20151222
  Transmission Date: 20160304
  Serious: Yes (Death, Other)
  Sender: FDA-Public Use
  Company Number: JP-SA-2015SA129233

PATIENT
  Age: 67 Year
  Sex: Male
  Weight: 72.3 kg

DRUGS (20)
  1. G-LASTA [Suspect]
     Active Substance: PEGFILGRASTIM
     Route: 065
     Dates: start: 20150731, end: 20150731
  2. TAKEPRON [Suspect]
     Active Substance: LANSOPRAZOLE
     Route: 048
     Dates: start: 20140219
  3. ZOSYN [Concomitant]
     Active Substance: PIPERACILLIN SODIUM\TAZOBACTAM SODIUM
     Indication: CHOLECYSTITIS
  4. DECADRON [Concomitant]
     Active Substance: DEXAMETHASONE
     Dates: start: 20150701, end: 20150701
  5. JEVTANA [Suspect]
     Active Substance: CABAZITAXEL
     Indication: PROSTATE CANCER
     Dosage: 36 MG/BODY
     Route: 042
     Dates: start: 20150701, end: 20150701
  6. GASTER [Concomitant]
     Active Substance: FAMOTIDINE
     Dates: start: 20150730, end: 20150730
  7. ASTOMIN [Suspect]
     Active Substance: DIMEMORFAN
     Route: 048
     Dates: start: 20150807
  8. URSO [Concomitant]
     Active Substance: URSODIOL
     Indication: HEPATIC FUNCTION ABNORMAL
     Route: 048
     Dates: start: 20140701
  9. GASTER [Concomitant]
     Active Substance: FAMOTIDINE
     Dates: start: 20150701, end: 20150701
  10. MUCODYNE [Suspect]
     Active Substance: CARBOCYSTEINE
     Route: 048
     Dates: start: 20150807
  11. DECADRON [Concomitant]
     Active Substance: DEXAMETHASONE
     Dates: start: 20150730, end: 20150730
  12. JEVTANA [Suspect]
     Active Substance: CABAZITAXEL
     Indication: PROSTATE CANCER
     Dosage: 36 MG/BODY
     Route: 042
     Dates: start: 20150730, end: 20150730
  13. CRAVIT [Suspect]
     Active Substance: LEVOFLOXACIN
     Route: 048
     Dates: start: 20150807
  14. POLARAMINE [Concomitant]
     Active Substance: DEXCHLORPHENIRAMINE MALEATE
     Dates: start: 20150730, end: 20150730
  15. PREDONINE [Suspect]
     Active Substance: PREDNISOLONE\PREDNISOLONE ACETATE\PREDNISOLONE SODIUM SUCCINATE
     Indication: PROSTATE CANCER
     Route: 048
     Dates: start: 20140219
  16. DENOTAS CHEWABLE COMBINATION TABLET [Suspect]
     Active Substance: CALCIUM CARBONATE\CHOLECALCIFEROL\MAGNESIUM CARBONATE
     Route: 048
     Dates: start: 20140206
  17. PRIMPERAN [Suspect]
     Active Substance: METOCLOPRAMIDE HYDROCHLORIDE
     Route: 065
  18. G-LASTA [Suspect]
     Active Substance: PEGFILGRASTIM
     Route: 065
     Dates: start: 20150702, end: 20150702
  19. XTANDI [Suspect]
     Active Substance: ENZALUTAMIDE
     Indication: PROSTATE CANCER
     Route: 065
     Dates: start: 2014
  20. POLARAMINE [Concomitant]
     Active Substance: DEXCHLORPHENIRAMINE MALEATE
     Dates: start: 20150701, end: 20150701

REACTIONS (7)
  - Hepatic failure [Fatal]
  - White blood cell count decreased [Recovering/Resolving]
  - Bone marrow failure [Unknown]
  - Platelet count decreased [Recovering/Resolving]
  - Liver disorder [Not Recovered/Not Resolved]
  - Neutrophil count decreased [Recovered/Resolved]
  - Neutrophil count decreased [Recovered/Resolved]

NARRATIVE: CASE EVENT DATE: 20150706
